FAERS Safety Report 8460120-1 (Version None)
Quarter: 2012Q2

REPORT INFORMATION
  Report Type: 
  Country: None (occurrence: None)
  Receive Date: 20120622
  Receipt Date: 20120618
  Transmission Date: 20120825
  Serious: Yes (Death, Life-Threatening, Hospitalization, Other)
  Sender: FDA-Public Use
  Company Number: JP-ELI_LILLY_AND_COMPANY-JP201204001475

PATIENT
  Sex: Male
  Weight: 51 kg

DRUGS (9)
  1. KYTRIL [Concomitant]
     Indication: PROPHYLAXIS OF NAUSEA AND VOMITING
     Dosage: 3 MG, UNK
     Route: 042
     Dates: start: 20120214, end: 20120327
  2. LOXONIN [Concomitant]
     Indication: BACK PAIN
     Dosage: 3 DF, UNK
     Route: 048
     Dates: start: 20120201, end: 20120405
  3. NORVASC [Concomitant]
     Indication: HYPERTENSION
     Dosage: 5 G, UNK
     Route: 048
     Dates: start: 20120201, end: 20120405
  4. GEMZAR [Suspect]
     Indication: PANCREATIC CARCINOMA STAGE IV
     Dosage: 1000 MG, OTHER
     Route: 042
     Dates: start: 20120214, end: 20120327
  5. MUCOSTA [Concomitant]
     Indication: GASTRITIS
     Dosage: 3 DF, UNK
     Route: 048
     Dates: start: 20120201, end: 20120405
  6. DECADRON [Concomitant]
     Indication: PROPHYLAXIS
     Dosage: 6.6 MG, UNK
     Route: 042
     Dates: start: 20120214, end: 20120327
  7. ZOLPIDEM [Concomitant]
     Indication: INSOMNIA
     Dosage: 1 DF, UNK
     Route: 048
     Dates: start: 20120201, end: 20120405
  8. MAGLAX [Concomitant]
     Indication: CONSTIPATION
     Dosage: 3 DF, UNK
     Route: 048
     Dates: start: 20120201, end: 20120405
  9. FAMOTIDINE [Concomitant]
     Indication: GASTROOESOPHAGEAL REFLUX DISEASE
     Dosage: 2 DF, UNK
     Route: 048
     Dates: start: 20120201, end: 20120405

REACTIONS (7)
  - CIRCULATORY COLLAPSE [None]
  - MELAENA [None]
  - INTERSTITIAL LUNG DISEASE [None]
  - HAEMOGLOBIN DECREASED [None]
  - OEDEMA PERIPHERAL [None]
  - LUNG INFECTION [None]
  - UPPER GASTROINTESTINAL HAEMORRHAGE [None]
